FAERS Safety Report 4837373-1 (Version None)
Quarter: 2005Q4

REPORT INFORMATION
  Report Type: 
  Country: None (occurrence: None)
  Receive Date: 20051122
  Receipt Date: 20051103
  Transmission Date: 20060501
  Serious: Yes (Other)
  Sender: FDA-Public Use
  Company Number: 219599

PATIENT
  Age: 83 Year
  Sex: Female
  Weight: 68 kg

DRUGS (7)
  1. HERCEPTIN [Suspect]
     Indication: BREAST CANCER
     Dosage: 6 MG/KG,
     Dates: end: 20050701
  2. METOPROLOL TARTRATE [Concomitant]
  3. HYDROCHLOROTHIAZIDE [Concomitant]
  4. CAPTOPRIL [Concomitant]
  5. LOVASTATIN [Concomitant]
  6. AZATHIOPRINE [Concomitant]
  7. OPIPRAMOL (OPIPRAMOL HYDROCHLORIDE) [Concomitant]

REACTIONS (1)
  - DYSGEUSIA [None]
